FAERS Safety Report 8718434 (Version 2)
Quarter: 2013Q4

REPORT INFORMATION
  Report Type: Spontaneous
  Country: CA (occurrence: CA)
  Receive Date: 20120810
  Receipt Date: 20131108
  Transmission Date: 20140711
  Serious: Yes (Hospitalization)
  Sender: FDA-Public Use
  Company Number: CA-009507513-1208CAN004396

PATIENT
  Sex: Female

DRUGS (2)
  1. PEGETRON [Suspect]
     Indication: HEPATITIS C
     Dosage: 200 MICROGRAM, UNK
     Route: 058
     Dates: start: 201204, end: 201208
  2. VICTRELIS [Suspect]
     Indication: HEPATITIS C
     Dosage: 200 MG, UNK
     Dates: start: 201204, end: 201208

REACTIONS (1)
  - Postoperative wound infection [Unknown]
